FAERS Safety Report 6150655-9 (Version None)
Quarter: 2009Q2

REPORT INFORMATION
  Report Type: 
  Country: None (occurrence: None)
  Receive Date: 20090409
  Receipt Date: 20090406
  Transmission Date: 20091009
  Serious: Yes (Other)
  Sender: FDA-Public Use
  Company Number: US-JNJCH-2009008509

PATIENT
  Sex: Male

DRUGS (1)
  1. VISINE EYE DROPS [Suspect]
     Indication: EYE IRRITATION
     Dosage: TEXT:SEVERAL DROPS (FREQUENCY UNSPECIFIED)
     Route: 047

REACTIONS (4)
  - ALTERED VISUAL DEPTH PERCEPTION [None]
  - DRUG INEFFECTIVE [None]
  - METAMORPHOPSIA [None]
  - VISION BLURRED [None]
